FAERS Safety Report 6467705-2 (Version None)
Quarter: 2009Q4

REPORT INFORMATION
  Report Type: 
  Country: None (occurrence: None)
  Receive Date: 20091202
  Receipt Date: 20091127
  Transmission Date: 20100525
  Serious: Yes (Death, Hospitalization)
  Sender: FDA-Public Use
  Company Number: PHHY2009MX51828

PATIENT
  Sex: Male

DRUGS (4)
  1. GALVUS [Suspect]
     Indication: DIABETES MELLITUS
     Dosage: 1 TABLET (50 MG) / DAY
     Dates: start: 20070601, end: 20090301
  2. DIOVAN HCT [Suspect]
     Indication: HYPERTENSION
     Dosage: 1 TABLET (80/12.5 MG) DAILY
     Route: 048
     Dates: start: 20060101
  3. EXFORGE [Suspect]
     Indication: HYPERTENSION
     Dosage: 1 TABLET
     Dates: start: 20060801, end: 20090301
  4. DIOVAN [Suspect]
     Indication: HYPERTENSION
     Dosage: 1 TABLET (80 MG) / DAY
     Dates: end: 20090301

REACTIONS (4)
  - ACUTE MYOCARDIAL INFARCTION [None]
  - HYPERTENSION [None]
  - OEDEMA PERIPHERAL [None]
  - TREATMENT NONCOMPLIANCE [None]
